FAERS Safety Report 10071919 (Version 2)
Quarter: 2014Q2

REPORT INFORMATION
  Report Type: Spontaneous
  Country: US (occurrence: US)
  Receive Date: 20140411
  Receipt Date: 20140411
  Transmission Date: 20141212
  Serious: No
  Sender: FDA-Public Use
  Company Number: US-SHIRE-ALL1-2014-01200

PATIENT
  Age: 42 Year
  Sex: Female
  Weight: 68.03 kg

DRUGS (3)
  1. VYVANSE [Suspect]
     Indication: ATTENTION DEFICIT/HYPERACTIVITY DISORDER
     Dosage: 30 MG, 1X/DAY:QD
     Route: 048
     Dates: start: 2009
  2. METOPROLOL [Concomitant]
     Indication: MITRAL VALVE PROLAPSE
     Dosage: 50 MG, 1X/DAY:QD
     Route: 048
     Dates: start: 2004
  3. XANAX [Concomitant]
     Indication: ANXIETY
     Dosage: 0.1 MG(HALF OF 0.2 MG), AS REQ^D
     Route: 048
     Dates: start: 2009

REACTIONS (4)
  - Hypersomnia [Recovered/Resolved]
  - Asthenia [Not Recovered/Not Resolved]
  - Fatigue [Not Recovered/Not Resolved]
  - Drug ineffective [Not Recovered/Not Resolved]
